FAERS Safety Report 16662780 (Version 1)
Quarter: 2019Q3

REPORT INFORMATION
  Report Type: Report from Study
  Country: US (occurrence: US)
  Receive Date: 20190802
  Receipt Date: 20190802
  Transmission Date: 20191004
  Serious: No
  Sender: FDA-Public Use
  Company Number: US-EXELIXIS-CABO-19018355

PATIENT
  Age: 64 Year
  Sex: Male

DRUGS (22)
  1. COENZYME Q10 [Concomitant]
     Active Substance: UBIDECARENONE
  2. MULTIVITAMINS, COMBINATIONS [Concomitant]
     Active Substance: VITAMINS
  3. MAGNESIUM [Concomitant]
     Active Substance: MAGNESIUM
  4. TYLENOL [Concomitant]
     Active Substance: ACETAMINOPHEN
  5. TOUJEO [Concomitant]
     Active Substance: INSULIN GLARGINE
  6. LOSARTAN POTASSIUM. [Concomitant]
     Active Substance: LOSARTAN POTASSIUM
  7. VITAMIN D3 [Concomitant]
     Active Substance: CHOLECALCIFEROL
  8. METOPROLOL SUCCINATE. [Concomitant]
     Active Substance: METOPROLOL SUCCINATE
  9. POTASSIUM CHLORIDE. [Concomitant]
     Active Substance: POTASSIUM CHLORIDE
  10. XARELTO [Concomitant]
     Active Substance: RIVAROXABAN
  11. COLACE [Concomitant]
     Active Substance: DOCUSATE SODIUM
  12. MAALOX EXTRA STRENGTH [Concomitant]
  13. ATORVASTATIN CALCIUM. [Concomitant]
     Active Substance: ATORVASTATIN CALCIUM
  14. CABOMETYX [Suspect]
     Active Substance: CABOZANTINIB S-MALATE
     Indication: RENAL CELL CARCINOMA
     Dosage: 60 MG, QD
     Route: 048
     Dates: start: 20181222
  15. VITAMIN C [Concomitant]
     Active Substance: ASCORBIC ACID
  16. METOLAZONE. [Concomitant]
     Active Substance: METOLAZONE
  17. ACTICLATE [Concomitant]
     Active Substance: DOXYCYCLINE HYCLATE
  18. AMILORIDE HCL [Concomitant]
     Active Substance: AMILORIDE HYDROCHLORIDE
  19. CABOMETYX [Suspect]
     Active Substance: CABOZANTINIB S-MALATE
     Indication: METASTASES TO LYMPH NODES
  20. OMEGA-3 ACIDS [Concomitant]
     Active Substance: OMEGA-3 FATTY ACIDS
  21. VITAMIN E [Concomitant]
     Active Substance: .ALPHA.-TOCOPHEROL
  22. ALLOPURINOL. [Concomitant]
     Active Substance: ALLOPURINOL

REACTIONS (2)
  - Skin ulcer [Unknown]
  - Rash [Unknown]

NARRATIVE: CASE EVENT DATE: 201901
